FAERS Safety Report 12764357 (Version 1)
Quarter: 2016Q3

REPORT INFORMATION
  Report Type: Spontaneous
  Country: PL (occurrence: PL)
  Receive Date: 20160920
  Receipt Date: 20160920
  Transmission Date: 20161109
  Serious: Yes (Hospitalization, Other)
  Sender: FDA-Public Use
  Company Number: PL-GILEAD-2016-0232393

PATIENT
  Age: 69 Year
  Sex: Male
  Weight: 67.98 kg

DRUGS (8)
  1. TIXTELLER [Concomitant]
  2. HARVONI [Suspect]
     Active Substance: LEDIPASVIR\SOFOSBUVIR
     Indication: HIV INFECTION
     Dosage: 1 DF, QD
     Route: 048
     Dates: start: 20160715
  3. HYDROCORTISONUM                    /00028601/ [Concomitant]
  4. RIBAVIRIN. [Concomitant]
     Active Substance: RIBAVIRIN
  5. VEROSPIRON [Concomitant]
     Active Substance: SPIRONOLACTONE
  6. FUROSEMIDUM                        /00032601/ [Concomitant]
  7. CARVEDILOL. [Concomitant]
     Active Substance: CARVEDILOL
  8. SYMASTERIDE [Concomitant]

REACTIONS (1)
  - Hepatic failure [Recovering/Resolving]
